FAERS Safety Report 4913633-0 (Version None)
Quarter: 2006Q1

REPORT INFORMATION
  Report Type: 
  Country: None (occurrence: None)
  Receive Date: 20060216
  Receipt Date: 20060201
  Transmission Date: 20060701
  Serious: Yes (Hospitalization, Other)
  Sender: FDA-Public Use
  Company Number: US-AMGEN-STX167178

PATIENT
  Sex: Female

DRUGS (10)
  1. ENBREL [Suspect]
     Indication: RHEUMATOID ARTHRITIS
     Route: 065
     Dates: start: 20040901, end: 20060101
  2. DARVOCET-N 50 [Concomitant]
  3. ALPRAZOLAM [Concomitant]
  4. LEXAPRO [Concomitant]
  5. ATENDOL [Concomitant]
  6. ZOCOR [Concomitant]
  7. FOLIC ACID [Concomitant]
  8. NEURONTIN [Concomitant]
  9. RENAGEL [Concomitant]
  10. PROCRIT [Concomitant]

REACTIONS (5)
  - ABDOMINAL ABSCESS [None]
  - ABDOMINAL PAIN [None]
  - CHILLS [None]
  - PYREXIA [None]
  - STAPHYLOCOCCAL INFECTION [None]
